FAERS Safety Report 7685765-8 (Version None)
Quarter: 2011Q3

REPORT INFORMATION
  Report Type: 
  Country: None (occurrence: None)
  Receive Date: 20110815
  Receipt Date: 20110815
  Transmission Date: 20111222
  Serious: Yes (Hospitalization)
  Sender: FDA-Public Use
  Company Number: None

PATIENT

DRUGS (14)
  1. CALCIUM CARBONATE [Concomitant]
  2. VITAMIN D [Concomitant]
  3. CARVEDILOL [Concomitant]
  4. SIMAVASTATIN [Concomitant]
  5. PRILOSEC [Concomitant]
  6. DIGOXIN [Concomitant]
  7. RELAFEN [Concomitant]
  8. PRADAXA [Suspect]
     Indication: ATRIAL FIBRILLATION
     Route: 048
     Dates: start: 20110701, end: 20110703
  9. COMBIVENT [Concomitant]
  10. CLONIDINE [Concomitant]
  11. ADVAIR DISKUS 100/50 [Concomitant]
  12. PRILOSEC [Concomitant]
  13. ACTOS [Concomitant]
  14. LASIX [Concomitant]

REACTIONS (3)
  - HAEMORRHOIDS [None]
  - HAEMORRHAGE [None]
  - DIVERTICULUM [None]
